FAERS Safety Report 9030599 (Version 1)
Quarter: 2013Q1

REPORT INFORMATION
  Report Type: Spontaneous
  Country: RO (occurrence: RO)
  Receive Date: 20130123
  Receipt Date: 20130123
  Transmission Date: 20140127
  Serious: Yes (Other)
  Sender: FDA-Public Use
  Company Number: RO-ASTRAZENECA-2013SE03086

PATIENT
  Sex: Male

DRUGS (9)
  1. ZOLADEX [Suspect]
     Indication: PROSTATE CANCER
     Route: 058
     Dates: start: 201006
  2. CHEMOTHERAPY [Suspect]
  3. CASODEX [Concomitant]
     Indication: PROSTATE CANCER
     Route: 048
     Dates: start: 201006, end: 20110126
  4. CABAZITAXEL [Concomitant]
     Dosage: 25MG/MP EVERY 21 DAYS
     Dates: start: 20120322
  5. DOCETAXEL [Concomitant]
     Dosage: 75 MG/MP
     Dates: start: 20110328
  6. PREDNISON [Concomitant]
     Dates: start: 20120322
  7. BISPHOSPHONATE [Concomitant]
  8. LEUKOCYTE GROWTH FACTOR [Concomitant]
  9. ANTI ALGIC DRUGS [Concomitant]

REACTIONS (1)
  - Neutropenia [Unknown]
